FAERS Safety Report 23377454 (Version 1)
Quarter: 2024Q1

REPORT INFORMATION
  Report Type: Spontaneous
  Country: US (occurrence: US)
  Receive Date: 20240108
  Receipt Date: 20240108
  Transmission Date: 20240410
  Serious: Yes (Hospitalization, Other)
  Sender: FDA-Public Use
  Company Number: US-MLMSERVICE-20231221-4733633-1

PATIENT
  Age: 62 Year
  Sex: Male

DRUGS (6)
  1. MYCOPHENOLATE MOFETIL [Suspect]
     Active Substance: MYCOPHENOLATE MOFETIL
     Indication: Sarcoidosis
  2. RITUXIMAB [Suspect]
     Active Substance: RITUXIMAB
     Indication: Sarcoidosis
     Dosage: RECEIVED 2 CYCLES-WITHIN THE LAST 3 MONTHS BEFORE ADMISSION
  3. PREDNISONE [Suspect]
     Active Substance: PREDNISONE
     Indication: Condition aggravated
  4. PREDNISONE [Suspect]
     Active Substance: PREDNISONE
     Indication: Condition aggravated
  5. PREDNISONE [Suspect]
     Active Substance: PREDNISONE
     Indication: Condition aggravated
  6. PREDNISONE [Suspect]
     Active Substance: PREDNISONE
     Indication: Sarcoidosis

REACTIONS (2)
  - Histoplasmosis disseminated [Recovering/Resolving]
  - Off label use [Unknown]
